FAERS Safety Report 13644020 (Version 5)
Quarter: 2018Q2

REPORT INFORMATION
  Report Type: Spontaneous
  Country: US (occurrence: US)
  Receive Date: 20170612
  Receipt Date: 20180516
  Transmission Date: 20180711
  Serious: Yes (Other)
  Sender: FDA-Public Use
  Company Number: US-ALLERGAN-1723889US

PATIENT
  Age: 60 Year
  Sex: Female

DRUGS (1)
  1. RESTASIS [Suspect]
     Active Substance: CYCLOSPORINE
     Indication: DRY EYE
     Dosage: UNK
     Route: 047

REACTIONS (6)
  - Back disorder [Unknown]
  - Drug dose omission [Unknown]
  - Drug ineffective [Unknown]
  - Expired product administered [Unknown]
  - Stress [Unknown]
  - Dry eye [Unknown]

NARRATIVE: CASE EVENT DATE: 2014
